FAERS Safety Report 11965225 (Version 1)
Quarter: 2016Q1

REPORT INFORMATION
  Report Type: Spontaneous
  Country: US (occurrence: None)
  Receive Date: 20160125
  Receipt Date: 20160125
  Transmission Date: 20160526
  Serious: No
  Sender: FDA-Public Use
  Company Number: None

PATIENT
  Age: 36 Year
  Sex: Male
  Weight: 97.52 kg

DRUGS (5)
  1. 5-HTP [Concomitant]
     Active Substance: OXITRIPTAN
  2. KRILL OIL [Concomitant]
     Active Substance: DIETARY SUPPLEMENT
  3. NOVOLOG [Concomitant]
     Active Substance: INSULIN ASPART
  4. MEDTRONIC MINED INSULIN PUMP [Concomitant]
  5. DEXILANT [Suspect]
     Active Substance: DEXLANSOPRAZOLE
     Indication: GASTROOESOPHAGEAL REFLUX DISEASE
     Dosage: 1 PILL ONCE DAILY TAKEN BY MOUTH
     Dates: start: 20151221, end: 20160120

REACTIONS (1)
  - Chest pain [None]

NARRATIVE: CASE EVENT DATE: 20160122
